FAERS Safety Report 24252654 (Version 1)
Quarter: 2024Q3

REPORT INFORMATION
  Report Type: Spontaneous
  Country: US (occurrence: US)
  Receive Date: 20240827
  Receipt Date: 20240827
  Transmission Date: 20241017
  Serious: Yes (Death, Other)
  Sender: AMGEN
  Company Number: US-AMGEN-USASP2024166385

PATIENT

DRUGS (2)
  1. BEVACIZUMAB [Suspect]
     Active Substance: BEVACIZUMAB
     Indication: Glioma
     Dosage: UNK
     Route: 065
  2. IVOSIDENIB [Concomitant]
     Active Substance: IVOSIDENIB
     Indication: Glioma
     Dosage: RECEIVED AT LEAST ONE CYCLE

REACTIONS (9)
  - Death [Fatal]
  - Glioma [Unknown]
  - Confusional state [Unknown]
  - Off label use [Unknown]
  - Therapy partial responder [Unknown]
  - Fatigue [Unknown]
  - Diarrhoea [Unknown]
  - Pyrexia [Unknown]
  - Asthenia [Unknown]
